FAERS Safety Report 6302128-8 (Version None)
Quarter: 2009Q3

REPORT INFORMATION
  Report Type: 
  Country: None (occurrence: None)
  Receive Date: 20090807
  Receipt Date: 20090727
  Transmission Date: 20100115
  Serious: Yes (Death, Other)
  Sender: FDA-Public Use
  Company Number: ES-GENENTECH-288056

PATIENT
  Age: 80 Year
  Sex: Female

DRUGS (1)
  1. ACTIVASE [Suspect]
     Indication: ISCHAEMIC STROKE
     Dosage: 15 MG, UNK
     Route: 042

REACTIONS (2)
  - AORTIC DISSECTION [None]
  - BLOOD PRESSURE DECREASED [None]
